FAERS Safety Report 8576773-3 (Version None)
Quarter: 2012Q3

REPORT INFORMATION
  Report Type: 
  Country: None (occurrence: None)
  Receive Date: 20120807
  Receipt Date: 20120723
  Transmission Date: 20120928
  Serious: Yes (Death, Hospitalization, Other)
  Sender: FDA-Public Use
  Company Number: JP-WATSON-2012-13371

PATIENT
  Age: 15 Year
  Sex: Male

DRUGS (2)
  1. FLUVOXAMINE MALEATE [Suspect]
     Indication: SOCIAL PHOBIA
     Dosage: 15 MG, SINGLE
     Route: 065
     Dates: start: 20090101
  2. TANDOSPIRONE [Suspect]
     Indication: SOCIAL PHOBIA
     Dosage: 10 MG, SINGLE
     Route: 065

REACTIONS (13)
  - DISSEMINATED INTRAVASCULAR COAGULATION [None]
  - INFLAMMATION [None]
  - SEROTONIN SYNDROME [None]
  - UNRESPONSIVE TO STIMULI [None]
  - METABOLIC ACIDOSIS [None]
  - PUPIL FIXED [None]
  - RHABDOMYOLYSIS [None]
  - BRAIN OEDEMA [None]
  - MOUTH HAEMORRHAGE [None]
  - OVERDOSE [None]
  - CONVULSION [None]
  - CARDIO-RESPIRATORY ARREST [None]
  - RENAL FAILURE ACUTE [None]
